FAERS Safety Report 24628074 (Version 2)
Quarter: 2025Q3

REPORT INFORMATION
  Report Type: Spontaneous
  Country: US (occurrence: US)
  Receive Date: 20241117
  Receipt Date: 20250816
  Transmission Date: 20251021
  Serious: No
  Sender: ALEXION PHARMACEUTICALS
  Company Number: US-AstraZeneca-CH-00718027AP

PATIENT
  Age: 71 Year
  Sex: Female

DRUGS (1)
  1. FASENRA [Suspect]
     Active Substance: BENRALIZUMAB

REACTIONS (3)
  - Device leakage [Unknown]
  - Inappropriate schedule of product administration [Unknown]
  - Sleep disorder [Unknown]

NARRATIVE: CASE EVENT DATE: 20240708
